FAERS Safety Report 5669375-X (Version None)
Quarter: 2008Q1

REPORT INFORMATION
  Report Type: 
  Country: None (occurrence: None)
  Receive Date: 20080317
  Receipt Date: 20080306
  Transmission Date: 20080703
  Serious: Yes (Other)
  Sender: FDA-Public Use
  Company Number: PHHY2008CA01169

PATIENT

DRUGS (7)
  1. BENZOTHIAZOLE [Concomitant]
  2. VITAMIN CAP [Concomitant]
     Route: 048
  3. CALCIUM CHANNEL BLOCKERS [Concomitant]
     Route: 048
  4. DIURETICS [Concomitant]
  5. BETA BLOCKING AGENTS [Concomitant]
     Route: 048
  6. DIOVAN [Suspect]
     Dosage: 160 MG, QD
  7. DIOVAN [Suspect]
     Dosage: 320 MG, QD
     Dates: start: 20071113

REACTIONS (2)
  - MICROALBUMINURIA [None]
  - PROTEINURIA [None]
